FAERS Safety Report 4421897-5 (Version None)
Quarter: 2004Q3

REPORT INFORMATION
  Report Type: 
  Country: None (occurrence: None)
  Receive Date: 20040806
  Receipt Date: 20040716
  Transmission Date: 20050211
  Serious: Yes (Hospitalization)
  Sender: FDA-Public Use
  Company Number: DE_040713966

PATIENT
  Sex: Female

DRUGS (3)
  1. FORTEO [Suspect]
     Indication: OSTEOPOROTIC FRACTURE
     Dosage: 20 UG
     Dates: start: 20040714, end: 20000714
  2. DUROGESIC (FENTANYL) [Concomitant]
  3. CALCIUM AND VITAMIN D [Concomitant]

REACTIONS (4)
  - ABDOMINAL PAIN [None]
  - FORMICATION [None]
  - RADICULAR PAIN [None]
  - STICKY SKIN [None]
